FAERS Safety Report 4713391-9 (Version None)
Quarter: 2005Q3

REPORT INFORMATION
  Report Type: 
  Country: None (occurrence: None)
  Receive Date: 20050711
  Receipt Date: 20050630
  Transmission Date: 20060218
  Serious: Yes (Hospitalization)
  Sender: FDA-Public Use
  Company Number: 215237

PATIENT
  Age: 75 Year
  Sex: Male
  Weight: 50 kg

DRUGS (13)
  1. RITUXAN [Suspect]
     Indication: NON-HODGKIN'S LYMPHOMA
     Dosage: 600 MG, UNK; INTRAVENOUS
     Route: 042
     Dates: start: 20041206, end: 20050223
  2. POLARAMINE [Concomitant]
  3. SOLU-MEDROL [Concomitant]
  4. ALLOPURINOL [Concomitant]
  5. PROMAC (JAPAN) (POLAPREZINC) [Concomitant]
  6. MUCOSTA (REBAMIPIDE) [Concomitant]
  7. SEROTONE (AZASETRON HYDROCHLORIDE) [Concomitant]
  8. EPINEPHRINE [Concomitant]
  9. THROMBIN [Concomitant]
  10. CYCLOPHOSPHAMIDE [Concomitant]
  11. FARMORUBICIN (EPIRUBICIN HYDROCHLORIDE) [Concomitant]
  12. ONCOVIN [Concomitant]
  13. PREDONINE (PREDNISOLONE ACETATE, PREDNISOLONE, PREDNISOLONE SODIUM SUC [Concomitant]

REACTIONS (9)
  - ABDOMINAL PAIN UPPER [None]
  - CHEST DISCOMFORT [None]
  - DIARRHOEA [None]
  - GASTRIC ULCER HAEMORRHAGE [None]
  - HAEMOGLOBIN DECREASED [None]
  - MANTLE CELL LYMPHOMA [None]
  - PYREXIA [None]
  - TUMOUR LYSIS SYNDROME [None]
  - WHITE BLOOD CELL COUNT DECREASED [None]
